FAERS Safety Report 13627107 (Version 1)
Quarter: 2017Q2

REPORT INFORMATION
  Report Type: Spontaneous
  Country: US (occurrence: US)
  Receive Date: 20170608
  Receipt Date: 20170608
  Transmission Date: 20170830
  Serious: No
  Sender: FDA-Public Use
  Company Number: None

PATIENT
  Age: 33 Year
  Sex: Male
  Weight: 63 kg

DRUGS (1)
  1. ENTYVIO [Suspect]
     Active Substance: VEDOLIZUMAB
     Indication: CROHN^S DISEASE
     Dosage: ?          OTHER FREQUENCY:WK0,2,6,Q8 WEEKS;?
     Route: 042

REACTIONS (3)
  - Dyspnoea [None]
  - Pruritus [None]
  - Rash papular [None]

NARRATIVE: CASE EVENT DATE: 20170606
